FAERS Safety Report 25491511 (Version 1)
Quarter: 2025Q2

REPORT INFORMATION
  Report Type: Spontaneous
  Country: CN (occurrence: CN)
  Receive Date: 20250629
  Receipt Date: 20250629
  Transmission Date: 20250716
  Serious: Yes (Hospitalization, Other)
  Sender: ABBVIE
  Company Number: CN-ABBVIE-6345356

PATIENT
  Age: 53 Year
  Sex: Female
  Weight: 53 kg

DRUGS (6)
  1. SEVOFLURANE [Suspect]
     Active Substance: SEVOFLURANE
     Indication: Anaesthesia procedure
     Route: 065
     Dates: start: 20250618, end: 20250618
  2. PROPOFOL [Concomitant]
     Active Substance: PROPOFOL
     Indication: Induction of anaesthesia
     Dosage: 50 MILLIGRAM?DOSE FORM: INJECTION
     Route: 042
     Dates: start: 20250618, end: 20250618
  3. CIPEPOFOL [Concomitant]
     Active Substance: CIPEPOFOL
     Indication: Induction of anaesthesia
     Dosage: 50 MILLIGRAM?DOSE FORM: INJECTION
     Route: 042
     Dates: start: 20250618, end: 20250618
  4. MANNITOL [Concomitant]
     Active Substance: MANNITOL
     Indication: Swelling
  5. TROPISETRON HYDROCHLORIDE [Concomitant]
     Active Substance: TROPISETRON HYDROCHLORIDE
     Indication: Prophylaxis of nausea and vomiting
  6. CEFUROXIME SODIUM [Concomitant]
     Active Substance: CEFUROXIME SODIUM
     Indication: Infection prophylaxis

REACTIONS (1)
  - Hepatic function abnormal [Unknown]

NARRATIVE: CASE EVENT DATE: 20250619
